FAERS Safety Report 7462241-9 (Version None)
Quarter: 2011Q2

REPORT INFORMATION
  Report Type: 
  Country: None (occurrence: None)
  Receive Date: 20110506
  Receipt Date: 20110412
  Transmission Date: 20111010
  Serious: Yes (Hospitalization, Other)
  Sender: FDA-Public Use
  Company Number: US-BAYER-201038359NA

PATIENT
  Age: 44 Year
  Sex: Female
  Weight: 113.38 kg

DRUGS (3)
  1. YAZ [Suspect]
     Indication: CONTRACEPTION
     Dosage: UNK UNK, QD
     Route: 048
     Dates: start: 20070101, end: 20080611
  2. YAZ [Suspect]
     Indication: PREMENSTRUAL SYNDROME
  3. LISINOPRIL [Concomitant]
     Indication: BLOOD PRESSURE INCREASED
     Dosage: UNK
     Dates: start: 20090201

REACTIONS (2)
  - DEEP VEIN THROMBOSIS [None]
  - PAIN [None]
